FAERS Safety Report 11078429 (Version 1)
Quarter: 2015Q2

REPORT INFORMATION
  Report Type: Spontaneous
  Country: CN (occurrence: None)
  Receive Date: 20150428
  Receipt Date: 20150428
  Transmission Date: 20150821
  Serious: Yes (Hospitalization)
  Sender: FDA-Public Use
  Company Number: FK201501945

PATIENT
  Age: 56 Year
  Sex: Female

DRUGS (4)
  1. FLUOROURACIL. [Suspect]
     Active Substance: FLUOROURACIL
     Indication: RECTAL CANCER STAGE IV
     Dosage: 0.6, ON D1, REPEATED EVERY 2 WK, INTRAVENOUS BOLUS?
     Route: 040
  2. IRINOTECAN [Suspect]
     Active Substance: IRINOTECAN
     Indication: RECTAL CANCER STAGE IV
     Dosage: 270 MG, ON D1, INTRAVENOUS (NOT OTHERWISE SPECIFIED)?
     Route: 042
  3. BEVACIZUMAB [Suspect]
     Active Substance: BEVACIZUMAB
     Indication: RECTAL CANCER STAGE IV
     Dosage: 300 MG, ON D1, INTRAVENOUS (NOT OTHERWISE SPECIFIED)?
     Route: 042
  4. LEUCOVORIN CALCIUM. [Suspect]
     Active Substance: LEUCOVORIN CALCIUM
     Indication: RECTAL CANCER STAGE IV
     Dosage: 0.3, ON D1, INTRAVENOUS (NOT OTHERWISE SPECIFIED)?
     Route: 042

REACTIONS (2)
  - Toxicity to various agents [None]
  - Posterior reversible encephalopathy syndrome [None]
